FAERS Safety Report 19116838 (Version 2)
Quarter: 2021Q3

REPORT INFORMATION
  Report Type: Report from Study
  Country: US (occurrence: US)
  Receive Date: 20210410
  Receipt Date: 20210707
  Transmission Date: 20211014
  Serious: Yes (Hospitalization, Other)
  Sender: FDA-Public Use
  Company Number: US-UCBSA-2021014999

PATIENT
  Age: 77 Year
  Sex: Male

DRUGS (2)
  1. ROTIGOTINE [Suspect]
     Active Substance: ROTIGOTINE
     Indication: RESTLESS LEGS SYNDROME
  2. ROTIGOTINE [Suspect]
     Active Substance: ROTIGOTINE
     Indication: PARKINSON^S DISEASE
     Dosage: 4 MILLIGRAM, ONCE DAILY (QD)

REACTIONS (5)
  - Therapeutic response shortened [Unknown]
  - Urinary tract infection [Not Recovered/Not Resolved]
  - Large intestinal obstruction [Not Recovered/Not Resolved]
  - Dysphagia [Not Recovered/Not Resolved]
  - Multiple system atrophy [Not Recovered/Not Resolved]

NARRATIVE: CASE EVENT DATE: 201906
